FAERS Safety Report 24923093 (Version 4)
Quarter: 2025Q1

REPORT INFORMATION
  Report Type: Spontaneous
  Country: US (occurrence: US)
  Receive Date: 20250204
  Receipt Date: 20250327
  Transmission Date: 20250408
  Serious: No
  Sender: ROCHE
  Company Number: US-ROCHE-10000196962

PATIENT
  Sex: Female
  Weight: 89.4 kg

DRUGS (1)
  1. ACTEMRA ACTPEN [Suspect]
     Active Substance: TOCILIZUMAB
     Indication: Iridocyclitis
     Dosage: STRENGTH:162MG/0.9M, ONGOING
     Route: 058
     Dates: start: 20241113

REACTIONS (2)
  - Weight decreased [Unknown]
  - Off label use [Unknown]
